FAERS Safety Report 4296106-0 (Version None)
Quarter: 2004Q1

REPORT INFORMATION
  Report Type: 
  Country: None (occurrence: None)
  Receive Date: 20040212
  Receipt Date: 20040129
  Transmission Date: 20041129
  Serious: Yes (Life-Threatening)
  Sender: FDA-Public Use
  Company Number: 2004-DE-00490ZA

PATIENT
  Age: 67 Year
  Sex: Male

DRUGS (2)
  1. MEXITIL [Suspect]
     Dosage: 100 MG
     Route: 048
     Dates: start: 19940101
  2. SOTALOL HCL [Concomitant]

REACTIONS (4)
  - ANXIETY [None]
  - EXTRASYSTOLES [None]
  - FEELING ABNORMAL [None]
  - PHARMACEUTICAL PRODUCT COMPLAINT [None]
